FAERS Safety Report 16864871 (Version 1)
Quarter: 2019Q3

REPORT INFORMATION
  Report Type: Spontaneous
  Country: DE (occurrence: DE)
  Receive Date: 20190929
  Receipt Date: 20190929
  Transmission Date: 20191005
  Serious: Yes (Other)
  Sender: FDA-Public Use
  Company Number: PHHY2019DE225972

PATIENT
  Age: 33 Year
  Sex: Female
  Weight: 112.5 kg

DRUGS (10)
  1. VIVIDRIN AKUT [Concomitant]
     Indication: MITE ALLERGY
     Dosage: UNK (ONLY IF REQUIRED)
     Route: 061
  2. L THYROXIN [Concomitant]
     Active Substance: LEVOTHYROXINE SODIUM
     Indication: HYPOTHYROIDISM
     Dosage: 100 G, QD (100 [G/D (BIS 50 G/D))
     Route: 048
  3. SALBUTAMOL [Concomitant]
     Active Substance: ALBUTEROL
     Indication: ASTHMA
     Dosage: UNK
     Route: 055
  4. HCT DEXCEL [Suspect]
     Active Substance: HYDROCHLOROTHIAZIDE
     Indication: HYPERTENSION
     Dosage: 12.5 MG, QD (12.5 [MG/D (12.5-0-0))
     Route: 048
  5. VIGANTOLETTEN [Concomitant]
     Active Substance: CHOLECALCIFEROL
     Indication: VITAMIN D DEFICIENCY
     Dosage: 1000 OT, QD (1000 [I.E./D ])
     Route: 048
  6. METOHEXAL [Suspect]
     Active Substance: METOPROLOL
     Indication: HYPERTENSION
     Dosage: 142.5 MG, QD (142.5 [MG/D (95-0-47.5))
     Route: 048
  7. ECURAL [Concomitant]
     Active Substance: MOMETASONE
     Indication: NEURODERMATITIS
     Dosage: UNK
     Route: 003
  8. NIFEDIPINE. [Suspect]
     Active Substance: NIFEDIPINE
     Indication: HYPERTENSION
     Dosage: 40 MG, QD (40 [MG/D (20-0- 20))
     Route: 048
  9. CITALOPRAM [Suspect]
     Active Substance: CITALOPRAM HYDROBROMIDE
     Indication: DEPRESSION
     Dosage: 20 MG, QD (20 [MG/D (20-0-0))
     Route: 048
     Dates: start: 20170922, end: 20180626
  10. AMLODIPINE [Suspect]
     Active Substance: AMLODIPINE BESYLATE
     Indication: HYPERTENSION
     Dosage: 10 MG, QD (10 [MG/D])
     Route: 048

REACTIONS (1)
  - Maternal exposure during pregnancy [Unknown]
